FAERS Safety Report 19959682 (Version 3)
Quarter: 2021Q4

REPORT INFORMATION
  Report Type: Report from Study
  Country: EE (occurrence: EE)
  Receive Date: 20211015
  Receipt Date: 20211115
  Transmission Date: 20220303
  Serious: Yes (Hospitalization, Other)
  Sender: FDA-Public Use
  Company Number: EE-GLAXOSMITHKLINE-EE2021186499

PATIENT
  Age: 25 Year
  Sex: Male

DRUGS (8)
  1. MENINGOCOCCAL GROUP B VACCINE [Suspect]
     Active Substance: MENINGOCOCCAL GROUP B VACCINE
     Indication: Prophylaxis
     Route: 030
     Dates: start: 20201209
  2. MENINGOCOCCAL GROUP B VACCINE [Suspect]
     Active Substance: MENINGOCOCCAL GROUP B VACCINE
     Route: 030
     Dates: start: 20210616
  3. MENVEO [Suspect]
     Active Substance: NEISSERIA MENINGITIDIS GROUP A CAPSULAR OLIGOSACCHARIDE DIPHTHERIA CRM197 PROTEIN CONJUGATE ANTIGEN\
     Indication: Prophylaxis
     Route: 030
     Dates: start: 20210208
  4. INVESTIGATIONAL PRODUCT [Suspect]
     Active Substance: INVESTIGATIONAL PRODUCT
     Indication: Prophylaxis
     Route: 030
     Dates: start: 20210726
  5. COMIRNATY [Concomitant]
     Active Substance: TOZINAMERAN
     Indication: Prophylaxis
     Dosage: 0.3 ML, 1D
     Route: 030
     Dates: start: 20210530, end: 20210530
  6. COMIRNATY [Concomitant]
     Active Substance: TOZINAMERAN
     Dosage: 0.3 ML, 1D
     Route: 030
     Dates: start: 20210711, end: 20210711
  7. PICOPREP [Concomitant]
     Active Substance: ANHYDROUS CITRIC ACID\MAGNESIUM OXIDE\SODIUM PICOSULFATE
     Indication: Laxative supportive care
     Dosage: 1 SACHET, TID
     Route: 048
     Dates: start: 20210729, end: 20210729
  8. NEXIUM [Concomitant]
     Active Substance: ESOMEPRAZOLE MAGNESIUM
     Indication: Prophylaxis
     Dosage: 40 MG, 1D
     Route: 048
     Dates: start: 20210805, end: 20210916

REACTIONS (1)
  - Colitis ulcerative [Not Recovered/Not Resolved]

NARRATIVE: CASE EVENT DATE: 20210730
